FAERS Safety Report 5430837-1 (Version None)
Quarter: 2007Q3

REPORT INFORMATION
  Report Type: 
  Country: None (occurrence: None)
  Receive Date: 20070830
  Receipt Date: 20061211
  Transmission Date: 20080115
  Serious: No
  Sender: FDA-Public Use
  Company Number: A0631132A

PATIENT
  Age: 78 Year
  Sex: Female

DRUGS (5)
  1. WELLBUTRIN XL [Suspect]
     Indication: DEPRESSION
     Dosage: 150MG TWICE PER DAY
     Route: 048
     Dates: start: 20061110
  2. LIPITOR [Concomitant]
  3. COZAAR [Concomitant]
  4. ASPIRIN [Concomitant]
  5. TRIAMTERENE [Concomitant]

REACTIONS (9)
  - CONFUSIONAL STATE [None]
  - DEPRESSION [None]
  - EXPIRED DRUG ADMINISTERED [None]
  - EYE PAIN [None]
  - FEELING ABNORMAL [None]
  - PYREXIA [None]
  - SKIN TIGHTNESS [None]
  - THINKING ABNORMAL [None]
  - WEIGHT DECREASED [None]
